FAERS Safety Report 4443030-6 (Version None)
Quarter: 2004Q3

REPORT INFORMATION
  Report Type: 
  Country: None (occurrence: None)
  Receive Date: 20040903
  Receipt Date: 20040629
  Transmission Date: 20050211
  Serious: Yes (Other)
  Sender: FDA-Public Use
  Company Number: 2004UW13490

PATIENT
  Age: 55 Year
  Sex: Female
  Weight: 72.5755 kg

DRUGS (16)
  1. CRESTOR [Suspect]
     Indication: BLOOD CHOLESTEROL INCREASED
  2. CRESTOR [Suspect]
     Indication: BLOOD CHOLESTEROL INCREASED
     Dosage: 20 MG PO
     Route: 048
  3. CRESTOR [Suspect]
     Indication: BLOOD CHOLESTEROL INCREASED
     Dosage: 30 MG PO
     Route: 048
  4. LIPITOR [Concomitant]
  5. MULTIVITAMIN [Concomitant]
  6. ECOTRIN [Concomitant]
  7. COREG [Concomitant]
  8. ACCUPRIL [Concomitant]
  9. ESTRADERM [Concomitant]
  10. MULTI-VITAMINS [Concomitant]
  11. FOLIC ACID [Concomitant]
  12. VITAMIN E [Concomitant]
  13. VITAMIN C [Concomitant]
  14. CALCIUM [Concomitant]
  15. COENZYME Q10 [Concomitant]
  16. NIACIN [Concomitant]

REACTIONS (1)
  - BONE PAIN [None]
